FAERS Safety Report 5323892-0 (Version None)
Quarter: 2007Q2

REPORT INFORMATION
  Report Type: 
  Country: None (occurrence: None)
  Receive Date: 20070514
  Receipt Date: 20070512
  Transmission Date: 20071010
  Serious: Yes (Hospitalization)
  Sender: FDA-Public Use
  Company Number: IT-GENENTECH-238932

PATIENT
  Sex: Female
  Weight: 92.5 kg

DRUGS (3)
  1. BEVACIZUMAB [Suspect]
     Indication: COLORECTAL CANCER
     Dosage: 440 MG, Q2W
     Route: 042
     Dates: start: 20060630
  2. CAPECITABINE [Suspect]
     Indication: COLORECTAL CANCER
     Dosage: 3800 MG, Q2W
     Route: 048
     Dates: start: 20060630
  3. OXALIPLATIN [Suspect]
     Indication: COLORECTAL CANCER
     Dosage: 55 MG, 1/WEEK
     Route: 042
     Dates: start: 20060630

REACTIONS (2)
  - PYREXIA [None]
  - SUBILEUS [None]
